FAERS Safety Report 25588913 (Version 1)
Quarter: 2025Q3

REPORT INFORMATION
  Report Type: Report from Study
  Country: US (occurrence: US)
  Receive Date: 20250722
  Receipt Date: 20250722
  Transmission Date: 20251020
  Serious: Yes (Other)
  Sender: TAKEDA
  Company Number: US-TAKEDA-US202003878

PATIENT
  Sex: Female

DRUGS (2)
  1. HUMAN IMMUNOGLOBULIN G\HYALURONIDASE RECOMBINANT HUMAN [Suspect]
     Active Substance: HUMAN IMMUNOGLOBULIN G\HYALURONIDASE (HUMAN RECOMBINANT)
     Indication: Primary immunodeficiency syndrome
  2. CUVITRU [Suspect]
     Active Substance: HUMAN IMMUNOGLOBULIN G
     Indication: Primary immunodeficiency syndrome

REACTIONS (18)
  - Uveitis [Unknown]
  - Infusion site urticaria [Unknown]
  - Infusion site pruritus [Unknown]
  - Immunoglobulins decreased [Unknown]
  - Dermatitis contact [Unknown]
  - Stress [Unknown]
  - Alopecia [Unknown]
  - Sinusitis [Unknown]
  - Pancreatic disorder [Unknown]
  - Skin atrophy [Unknown]
  - Incorrect dose administered [Unknown]
  - Immunoglobulins increased [Unknown]
  - Oral candidiasis [Unknown]
  - Product dispensing error [Unknown]
  - Lymphadenopathy [Unknown]
  - Nasopharyngitis [Unknown]
  - Memory impairment [Unknown]
  - Fatigue [Unknown]
